FAERS Safety Report 11610527 (Version 1)
Quarter: 2015Q4

REPORT INFORMATION
  Report Type: Spontaneous
  Country: US (occurrence: US)
  Receive Date: 20151008
  Receipt Date: 20151008
  Transmission Date: 20160304
  Serious: No
  Sender: FDA-Public Use
  Company Number: US-BRISTOL-MYERS SQUIBB COMPANY-BMS-2015-066869

PATIENT
  Sex: Male

DRUGS (2)
  1. SPRYCEL [Suspect]
     Active Substance: DASATINIB
     Indication: CHRONIC MYELOID LEUKAEMIA
     Dosage: 100 MG, QD
     Route: 048
     Dates: start: 20150904
  2. SPRYCEL [Suspect]
     Active Substance: DASATINIB
     Dosage: 100MG
     Dates: start: 20150904

REACTIONS (4)
  - Sinus congestion [Unknown]
  - Therapeutic aspiration [Unknown]
  - Feeling of body temperature change [Unknown]
  - Headache [Unknown]
